FAERS Safety Report 16552800 (Version 10)
Quarter: 2025Q2

REPORT INFORMATION
  Report Type: Spontaneous
  Country: US (occurrence: US)
  Receive Date: 20190710
  Receipt Date: 20250610
  Transmission Date: 20250717
  Serious: Yes (Hospitalization, Other)
  Sender: PFIZER
  Company Number: US-PFIZER INC-2019290372

PATIENT
  Age: 68 Year
  Sex: Female
  Weight: 108.86 kg

DRUGS (4)
  1. XELJANZ [Suspect]
     Active Substance: TOFACITINIB CITRATE
     Indication: Psoriatic arthropathy
     Dosage: 5 MG, 2X/DAY
     Dates: start: 201910
  2. XELJANZ [Suspect]
     Active Substance: TOFACITINIB CITRATE
  3. XELJANZ [Suspect]
     Active Substance: TOFACITINIB CITRATE
     Dosage: 5 MG, 2X/DAY
  4. ELIQUIS [Concomitant]
     Active Substance: APIXABAN
     Dates: end: 2021

REACTIONS (7)
  - Atrial fibrillation [Unknown]
  - Foot fracture [Recovering/Resolving]
  - Product dose omission issue [Unknown]
  - Psoriasis [Recovered/Resolved]
  - Muscle spasms [Unknown]
  - Feeling abnormal [Unknown]
  - Gait disturbance [Unknown]

NARRATIVE: CASE EVENT DATE: 20210101
